FAERS Safety Report 23670556 (Version 1)
Quarter: 2024Q1

REPORT INFORMATION
  Report Type: Spontaneous
  Country: US (occurrence: None)
  Receive Date: 20240326
  Receipt Date: 20240326
  Transmission Date: 20240409
  Serious: No
  Sender: FDA-Public Use
  Company Number: US-Encube-000640

PATIENT
  Age: 87 Year
  Sex: Female

DRUGS (4)
  1. KETOCONAZOLE [Suspect]
     Active Substance: KETOCONAZOLE
     Indication: Fungal infection
     Dosage: USED IN THE MORNING
  2. NYSTATIN [Concomitant]
     Active Substance: NYSTATIN
     Dosage: POWDER, USED IN THE AFTERNOON
  3. PREDNISONE [Concomitant]
     Active Substance: PREDNISONE
     Indication: Rheumatoid arthritis
     Dosage: PILL - 2.5, ONE IN THE MORNING AND ONE AT NIGHT
  4. KLOR-CON [Concomitant]
     Active Substance: POTASSIUM CHLORIDE
     Dosage: ONE IN THE MORNING AND ONE AT NIGHT

REACTIONS (1)
  - Therapeutic product effect decreased [Unknown]
